FAERS Safety Report 13500892 (Version 2)
Quarter: 2017Q4

REPORT INFORMATION
  Report Type: Spontaneous
  Country: US (occurrence: US)
  Receive Date: 20170501
  Receipt Date: 20171027
  Transmission Date: 20180320
  Serious: No
  Sender: FDA-Public Use
  Company Number: US-ROCHE-1833912

PATIENT
  Sex: Male

DRUGS (6)
  1. CLINDAMYCIN HCL [Concomitant]
     Active Substance: CLINDAMYCIN HYDROCHLORIDE
  2. PLAVIX [Concomitant]
     Active Substance: CLOPIDOGREL BISULFATE
  3. ESBRIET [Suspect]
     Active Substance: PIRFENIDONE
     Indication: PULMONARY FIBROSIS
     Route: 048
     Dates: start: 20160912
  4. BACITRACIN. [Concomitant]
     Active Substance: BACITRACIN
  5. ELIQUIS [Concomitant]
     Active Substance: APIXABAN
  6. DIOVAN [Concomitant]
     Active Substance: VALSARTAN

REACTIONS (2)
  - Nausea [Not Recovered/Not Resolved]
  - Rash pruritic [Unknown]
